FAERS Safety Report 5067184-6 (Version None)
Quarter: 2006Q3

REPORT INFORMATION
  Report Type: 
  Country: None (occurrence: None)
  Receive Date: 20060727
  Receipt Date: 20060719
  Transmission Date: 20061208
  Serious: Yes (Other)
  Sender: FDA-Public Use
  Company Number: 2006-03000

PATIENT
  Age: 33 Year
  Sex: Female

DRUGS (2)
  1. TRELSTAR DEPOT [Suspect]
     Dosage: 3.75 MG, MONTHLY/SINGLE, INTRAMUSCULAR
     Route: 030
     Dates: start: 20050413, end: 20050413
  2. MITOXANTRONE [Concomitant]

REACTIONS (1)
  - ARTHRALGIA [None]
